FAERS Safety Report 5587190-2 (Version None)
Quarter: 2008Q1

REPORT INFORMATION
  Report Type: 
  Country: None (occurrence: None)
  Receive Date: 20080110
  Receipt Date: 20080102
  Transmission Date: 20080703
  Serious: Yes (Other)
  Sender: FDA-Public Use
  Company Number: PHBS2008FR00466

PATIENT
  Age: 39 Year
  Sex: Female

DRUGS (4)
  1. CARBAMAZEPINE [Suspect]
     Indication: GRAND MAL CONVULSION
  2. PHENOBARBITAL TAB [Concomitant]
     Indication: GRAND MAL CONVULSION
  3. TOPIRAMATE [Concomitant]
     Indication: GRAND MAL CONVULSION
  4. ETHOSUXIMIDE [Concomitant]
     Indication: GRAND MAL CONVULSION

REACTIONS (1)
  - PETIT MAL EPILEPSY [None]
